FAERS Safety Report 18317613 (Version 1)
Quarter: 2020Q3

REPORT INFORMATION
  Report Type: Spontaneous
  Country: US (occurrence: US)
  Receive Date: 20200928
  Receipt Date: 20200928
  Transmission Date: 20201103
  Serious: No
  Sender: FDA-Public Use
  Company Number: US-JNJFOC-20200942837

PATIENT
  Age: 3 Year
  Sex: Female
  Weight: 17.03 kg

DRUGS (1)
  1. CHILDRENS MOTRIN [Suspect]
     Active Substance: IBUPROFEN
     Indication: ACCIDENTAL EXPOSURE TO PRODUCT
     Dosage: 3/4 OF BOTTLE ONCE
     Route: 048
     Dates: start: 20200919

REACTIONS (1)
  - Accidental overdose [Unknown]
